FAERS Safety Report 17699697 (Version 4)
Quarter: 2022Q1

REPORT INFORMATION
  Report Type: Spontaneous
  Country: US (occurrence: US)
  Receive Date: 20200423
  Receipt Date: 20220301
  Transmission Date: 20220424
  Serious: Yes (Other)
  Sender: FDA-Public Use
  Company Number: US-GILEAD-2020-0460269

PATIENT
  Sex: Female
  Weight: 68.027 kg

DRUGS (40)
  1. VIREAD [Suspect]
     Active Substance: TENOFOVIR DISOPROXIL FUMARATE
     Indication: HIV infection
     Dosage: UNK
     Route: 048
     Dates: start: 2005
  2. VIREAD [Suspect]
     Active Substance: TENOFOVIR DISOPROXIL FUMARATE
     Dosage: UNK
     Route: 048
     Dates: start: 2002, end: 2005
  3. TRUVADA [Suspect]
     Active Substance: EMTRICITABINE\TENOFOVIR DISOPROXIL FUMARATE
     Indication: HIV infection
     Dosage: UNK
     Route: 048
     Dates: start: 2005, end: 20130819
  4. BIKTARVY [Concomitant]
     Active Substance: BICTEGRAVIR SODIUM\EMTRICITABINE\TENOFOVIR ALAFENAMIDE FUMARATE
  5. ODEFSEY [Concomitant]
     Active Substance: EMTRICITABINE\RILPIVIRINE HYDROCHLORIDE\TENOFOVIR ALAFENAMIDE FUMARATE
  6. MIRTAZAPINE [Concomitant]
     Active Substance: MIRTAZAPINE
  7. FLUOXETINE [Concomitant]
     Active Substance: FLUOXETINE HYDROCHLORIDE
  8. ZOLPIDEM [Concomitant]
     Active Substance: ZOLPIDEM TARTRATE
  9. PROCHLORPERAZINE [Concomitant]
     Active Substance: PROCHLORPERAZINE
  10. PROZAC [Concomitant]
     Active Substance: FLUOXETINE HYDROCHLORIDE
  11. VICODIN [Concomitant]
     Active Substance: ACETAMINOPHEN\HYDROCODONE BITARTRATE
  12. ATORVASTATIN [Concomitant]
     Active Substance: ATORVASTATIN
  13. ZYRTEC [Concomitant]
     Active Substance: CETIRIZINE HYDROCHLORIDE
  14. FLONASE ALLERGY RELIEF [Concomitant]
     Active Substance: FLUTICASONE PROPIONATE
  15. PROVENTIL HFA [SALBUTAMOL] [Concomitant]
  16. TRETINOIN [Concomitant]
     Active Substance: TRETINOIN
  17. HYDROCORTISONE [Concomitant]
     Active Substance: HYDROCORTISONE
  18. CYANOCOBALAMIN [Concomitant]
     Active Substance: CYANOCOBALAMIN
  19. SUMATRIPTAN [Concomitant]
     Active Substance: SUMATRIPTAN
  20. GABAPENTIN [Concomitant]
     Active Substance: GABAPENTIN
  21. INDERAL [Concomitant]
     Active Substance: PROPRANOLOL HYDROCHLORIDE
  22. QUETIAPINE [Concomitant]
     Active Substance: QUETIAPINE
  23. LORAZEPAM [Concomitant]
     Active Substance: LORAZEPAM
  24. ACETAMINOPHEN [Concomitant]
     Active Substance: ACETAMINOPHEN
  25. ACYCLOVIR [Concomitant]
     Active Substance: ACYCLOVIR
  26. AMOXICILLIN [Concomitant]
     Active Substance: AMOXICILLIN
  27. OMEPRAZOLE [Concomitant]
     Active Substance: OMEPRAZOLE
  28. PENICILLIN V POTASSIUM [Concomitant]
     Active Substance: PENICILLIN V POTASSIUM
  29. PREDNISOLONE [Concomitant]
     Active Substance: PREDNISOLONE
  30. EDURANT [Concomitant]
     Active Substance: RILPIVIRINE HYDROCHLORIDE
  31. EMTRIVA [Concomitant]
     Active Substance: EMTRICITABINE
  32. REYATAZ [Concomitant]
     Active Substance: ATAZANAVIR SULFATE
  33. VALTREX [Concomitant]
     Active Substance: VALACYCLOVIR HYDROCHLORIDE
  34. ERYTHROMYCIN [Concomitant]
     Active Substance: ERYTHROMYCIN
  35. MINOCYCLINE [Concomitant]
     Active Substance: MINOCYCLINE HYDROCHLORIDE
  36. TRAMADOL [Concomitant]
     Active Substance: TRAMADOL
  37. COLACE [Concomitant]
     Active Substance: DOCUSATE SODIUM
  38. TIVICAY [Concomitant]
     Active Substance: DOLUTEGRAVIR SODIUM
  39. TYLENOL [Concomitant]
     Active Substance: ACETAMINOPHEN
  40. FLUOCINOLONE [Concomitant]
     Active Substance: FLUOCINOLONE

REACTIONS (26)
  - Multiple fractures [Unknown]
  - Facial bones fracture [Unknown]
  - Ankle fracture [Unknown]
  - Osteoporosis [Unknown]
  - Chronic kidney disease [Unknown]
  - Osteonecrosis [Unknown]
  - Muscle rupture [Unknown]
  - Renal failure [Unknown]
  - Bone density decreased [Unknown]
  - Osteopenia [Unknown]
  - Bone loss [Unknown]
  - Tooth loss [Unknown]
  - Osteoarthritis [Unknown]
  - Intervertebral disc disorder [Unknown]
  - Emotional distress [Not Recovered/Not Resolved]
  - Economic problem [Not Recovered/Not Resolved]
  - Oral pain [Unknown]
  - Gait disturbance [Unknown]
  - Mobility decreased [Unknown]
  - Tendon disorder [Unknown]
  - Enthesopathy [Unknown]
  - Facet joint syndrome [Unknown]
  - Lumbar spinal stenosis [Unknown]
  - Pain [Not Recovered/Not Resolved]
  - Proteinuria [Unknown]
  - Arthralgia [Unknown]
